FAERS Safety Report 5418872-0 (Version None)
Quarter: 2007Q3

REPORT INFORMATION
  Report Type: 
  Country: None (occurrence: None)
  Receive Date: 20070718
  Receipt Date: 20060720
  Transmission Date: 20080115
  Serious: Yes (Other)
  Sender: FDA-Public Use
  Company Number: 2006091481

PATIENT
  Age: 70 Year
  Sex: Female

DRUGS (1)
  1. CELEBREX [Suspect]
     Indication: ARTHRALGIA
     Dosage: 200 MG (100 MG, 2 IN 1 D)
     Dates: start: 20041012, end: 20041021

REACTIONS (1)
  - HAEMORRHAGE [None]
